FAERS Safety Report 5536407-9 (Version None)
Quarter: 2007Q4

REPORT INFORMATION
  Report Type: 
  Country: None (occurrence: None)
  Receive Date: 20071204
  Receipt Date: 20071120
  Transmission Date: 20080405
  Serious: Yes (Hospitalization)
  Sender: FDA-Public Use
  Company Number: 2007JP004688

PATIENT
  Age: 73 Year
  Sex: Male
  Weight: 68.3 kg

DRUGS (12)
  1. VESICARE [Suspect]
     Dosage: 5 MG, UID/QD, ORAL
     Route: 048
     Dates: start: 20061011, end: 20071002
  2. PREDNISOLONE [Concomitant]
  3. BAKTAR (SULFAMETHOXAZOLE, TRIMETHOPRIM) [Concomitant]
  4. OMEPRAL [Concomitant]
  5. RABEPRAZOLE SODIUM [Concomitant]
  6. MEDICON (DEXTROMETHORPHAN HYDROBROMIDE) [Concomitant]
  7. MUCOSOLVAN (AMBROXOL HYDROCHLORIDE) [Concomitant]
  8. MUCODYNE (CARBOCISTEINE) [Concomitant]
  9. DAZEN (SERRAPEPTASE) [Concomitant]
  10. ERYTHROCIN (ERYTHROMYCIN STEARATE) [Concomitant]
  11. FLUTIDE (FLUTICASONE PROPIONATE) [Concomitant]
  12. CODEINE SUL TAB [Concomitant]

REACTIONS (5)
  - ALVEOLITIS ALLERGIC [None]
  - EMPHYSEMA [None]
  - LUNG DISORDER [None]
  - LYMPHOCYTE STIMULATION TEST POSITIVE [None]
  - MALAISE [None]
